FAERS Safety Report 6130747-0 (Version None)
Quarter: 2009Q1

REPORT INFORMATION
  Report Type: 
  Country: None (occurrence: None)
  Receive Date: 20090323
  Receipt Date: 20090317
  Transmission Date: 20090719
  Serious: Yes (Death, Life-Threatening, Hospitalization, Other)
  Sender: FDA-Public Use
  Company Number: WAES 0811USA03439

PATIENT
  Age: 72 Year
  Sex: Female

DRUGS (10)
  1. VYTORIN [Suspect]
     Indication: ACUTE CORONARY SYNDROME
     Dosage: 10-40 MG/DAILY PO
     Route: 048
     Dates: start: 20061102, end: 20081003
  2. TAB PLACEBO (UNSPECIFIED) [Suspect]
     Indication: ACUTE CORONARY SYNDROME
     Dosage: PO
     Route: 048
     Dates: start: 20061102, end: 20081003
  3. ATACAND [Concomitant]
  4. DUROFERON [Concomitant]
  5. ESIDRIX [Concomitant]
  6. LEVOTHYROXINE SODIUM [Concomitant]
  7. ACETAMINOPHEN [Concomitant]
  8. TROMBYL [Concomitant]
  9. AMLODIPINE [Concomitant]
  10. ENALAPRIL MALEATE [Concomitant]

REACTIONS (8)
  - ABSCESS [None]
  - ANAEMIA [None]
  - COLON CANCER [None]
  - GENERAL PHYSICAL HEALTH DETERIORATION [None]
  - HEPATIC NEOPLASM MALIGNANT [None]
  - METASTASES TO LIVER [None]
  - PYREXIA [None]
  - TUMOUR HAEMORRHAGE [None]
